FAERS Safety Report 12872435 (Version 2)
Quarter: 2016Q4

REPORT INFORMATION
  Report Type: Spontaneous
  Country: US (occurrence: US)
  Receive Date: 20161021
  Receipt Date: 20161122
  Transmission Date: 20170207
  Serious: No
  Sender: FDA-Public Use
  Company Number: US-ASTRAZENECA-2016SF10910

PATIENT
  Sex: Male
  Weight: 47.6 kg

DRUGS (6)
  1. PREDNISONE. [Concomitant]
     Active Substance: PREDNISONE
     Indication: PROPHYLAXIS
     Route: 048
  2. BUDESONIDE VIA NEBULIZER [Concomitant]
     Indication: PROPHYLAXIS
     Route: 055
  3. TUDORZA PRESSAIR [Suspect]
     Active Substance: ACLIDINIUM BROMIDE
     Indication: CHRONIC OBSTRUCTIVE PULMONARY DISEASE
     Dosage: 400 MCG 1 PUFF IN THE MORNING AND 1 PUFF IN THE EVENING
     Route: 055
  4. VENTOLIN [Concomitant]
     Active Substance: ALBUTEROL SULFATE
     Indication: PROPHYLAXIS
     Dosage: 1 PUFF BID THEN 2 PUFFS AS NEEDED
     Route: 055
  5. OXYGEN. [Concomitant]
     Active Substance: OXYGEN
     Indication: DYSPNOEA
     Dosage: 2.0L CONTINUOUSLY
     Route: 045
  6. BROVANA VIA NEBULIZER [Concomitant]
     Indication: PROPHYLAXIS
     Route: 055

REACTIONS (3)
  - Dysphonia [Unknown]
  - Intentional product misuse [Unknown]
  - Device failure [Recovered/Resolved]
